FAERS Safety Report 15492545 (Version 1)
Quarter: 2018Q4

REPORT INFORMATION
  Report Type: Other
  Country: RO (occurrence: RO)
  Receive Date: 20181012
  Receipt Date: 20181012
  Transmission Date: 20190205
  Serious: Yes (Death)
  Sender: FDA-Public Use
  Company Number: RO-ACTELION-A-CH2018-179956

PATIENT

DRUGS (1)
  1. BOSENTAN. [Suspect]
     Active Substance: BOSENTAN
     Indication: SCLERODERMA ASSOCIATED DIGITAL ULCER
     Dosage: UNK
     Route: 048
     Dates: start: 201409, end: 201712

REACTIONS (3)
  - Hepatic enzyme increased [Unknown]
  - Pulmonary arterial hypertension [Fatal]
  - Drug ineffective [Unknown]
